APPROVED DRUG PRODUCT: SPRINTEC
Active Ingredient: ETHINYL ESTRADIOL; NORGESTIMATE
Strength: 0.035MG;0.25MG
Dosage Form/Route: TABLET;ORAL-28
Application: A075804 | Product #001 | TE Code: AB
Applicant: BARR LABORATORIES INC
Approved: Sep 25, 2002 | RLD: No | RS: Yes | Type: RX